FAERS Safety Report 9598221 (Version 2)
Quarter: 2013Q4

REPORT INFORMATION
  Report Type: Spontaneous
  Country: US (occurrence: US)
  Receive Date: 20131004
  Receipt Date: 20131004
  Transmission Date: 20140711
  Serious: No
  Sender: FDA-Public Use
  Company Number: US-AMGEN-USASP2013018633

PATIENT
  Age: 50 Year
  Sex: Female
  Weight: 97.91 kg

DRUGS (16)
  1. ENBREL [Suspect]
     Indication: RHEUMATOID ARTHRITIS
     Dosage: 50 MG, QWK
     Route: 058
     Dates: start: 20121220, end: 20130110
  2. ALENDRONATE [Concomitant]
     Indication: OSTEOPOROSIS
     Dosage: 20 MG, QWK
     Route: 048
  3. ASPIRIN [Concomitant]
     Dosage: 325 MG, QD
  4. FUROSEMIDE [Concomitant]
     Indication: FLUID RETENTION
     Dosage: 40 MG, QD
     Route: 048
  5. PRAVASTATIN [Concomitant]
     Indication: BLOOD CHOLESTEROL
     Dosage: 40 MG, QD
     Route: 048
  6. METOPROLOL [Concomitant]
     Indication: BLOOD PRESSURE
     Dosage: 100 MG, QD
     Route: 048
  7. FOLIC ACID [Concomitant]
     Dosage: 1 MG, QD
     Route: 048
  8. METHOTREXATE [Concomitant]
     Indication: ARTHRITIS
     Dosage: 2.5 MG, QWK
  9. MULTIVITAMINS, PLAIN [Concomitant]
     Dosage: UNK UNK, QD
     Route: 048
  10. LEXAPRO [Concomitant]
     Indication: DEPRESSION
     Dosage: 10 MG, QD
     Route: 048
  11. PREDNISONE [Concomitant]
     Dosage: 5 MG 1 TABLET EVER 2 WEEKS THEN HALF TAB FOR 2 WEEKS
     Route: 048
  12. METOPROLOL TARTRATE [Concomitant]
     Dosage: 200 MG, BID
     Route: 048
  13. COLACE [Concomitant]
     Dosage: 50 MG 2 TABLETS AT NIGHT
  14. CALCIUM 500+D [Concomitant]
     Dosage: 500 UNK, UNK
  15. METAMUCIL                          /00029101/ [Concomitant]
     Dosage: UNK UNK, QD
  16. MIRALAX                            /00754501/ [Concomitant]
     Dosage: 17 G, UNK
     Route: 048

REACTIONS (9)
  - Urticaria [Recovered/Resolved]
  - Hypersensitivity [Unknown]
  - Arthralgia [Unknown]
  - Joint swelling [Unknown]
  - Pain in extremity [Unknown]
  - Musculoskeletal stiffness [Unknown]
  - Injection site warmth [Unknown]
  - Injection site pruritus [Unknown]
  - Injection site swelling [Unknown]
